FAERS Safety Report 10746296 (Version 2)
Quarter: 2015Q1

REPORT INFORMATION
  Report Type: Spontaneous
  Country: NL (occurrence: NL)
  Receive Date: 20150128
  Receipt Date: 20150215
  Transmission Date: 20150721
  Serious: Yes (Hospitalization, Other)
  Sender: FDA-Public Use
  Company Number: NL-ACTAVIS-2015-00874

PATIENT
  Age: 28 Year
  Sex: Female

DRUGS (2)
  1. NITROFURANTOIN (WATSON LABORATORIES) [Suspect]
     Active Substance: NITROFURANTOIN
     Indication: CYSTITIS
     Dosage: UNK
     Route: 065
  2. PROLUTON                           /00073201/ [Concomitant]
     Indication: SHORTENED CERVIX
     Dosage: UNK, 1/WEEK
     Route: 030

REACTIONS (2)
  - Haemolytic anaemia [Recovered/Resolved]
  - Maternal exposure during pregnancy [Recovered/Resolved]
